FAERS Safety Report 22388879 (Version 2)
Quarter: 2023Q2

REPORT INFORMATION
  Report Type: Spontaneous
  Country: JP (occurrence: JP)
  Receive Date: 20230531
  Receipt Date: 20230629
  Transmission Date: 20230721
  Serious: Yes (Other)
  Sender: FDA-Public Use
  Company Number: JP-UNITED THERAPEUTICS-UNT-2021-022005

PATIENT
  Age: 10 Year
  Sex: Male

DRUGS (19)
  1. UNITUXIN [Suspect]
     Active Substance: DINUTUXIMAB
     Indication: Neuroblastoma recurrent
     Dosage: UNK UNK, CYCLICAL (CYCLE 1)
     Route: 041
     Dates: start: 20211025, end: 20211028
  2. UNITUXIN [Suspect]
     Active Substance: DINUTUXIMAB
     Dosage: UNK UNK, CYCLICAL (CYCLE 2)
     Route: 041
     Dates: start: 20211122, end: 20211125
  3. UNITUXIN [Suspect]
     Active Substance: DINUTUXIMAB
     Dosage: UNK UNK, CYCLICAL (CYCLE 3)
     Route: 041
     Dates: start: 20211213, end: 20211216
  4. UNITUXIN [Suspect]
     Active Substance: DINUTUXIMAB
     Dosage: UNK UNK, CYCLICAL (CYCLE 4)
     Route: 041
     Dates: start: 20220118, end: 20220121
  5. UNITUXIN [Suspect]
     Active Substance: DINUTUXIMAB
     Dosage: UNK UNK, CYCLICAL (CYCLE 5)
     Route: 041
     Dates: start: 20220207
  6. UNITUXIN [Suspect]
     Active Substance: DINUTUXIMAB
     Dosage: UNK UNK, CYCLICAL (CYCLE 6)
     Route: 041
  7. UNITUXIN [Suspect]
     Active Substance: DINUTUXIMAB
     Dosage: UNK UNK, CYCLICAL (CYCLE 7) [SECOND POST-MARKETING ADMINISTRATION OF UNITUXIN]
     Route: 041
     Dates: start: 20230509
  8. FILGRASTIM [Suspect]
     Active Substance: FILGRASTIM
     Indication: Neuroblastoma
     Dosage: UNK (REDUCING THE DOSE TO 2 ?G)
     Route: 058
     Dates: start: 20211022, end: 20211106
  9. FILGRASTIM [Suspect]
     Active Substance: FILGRASTIM
     Dosage: UNK (IN CYCLE 3 WAS STARTED)
     Route: 058
     Dates: start: 20211210, end: 20211217
  10. FILGRASTIM [Suspect]
     Active Substance: FILGRASTIM
     Dosage: 2 ?G/KG, UNK (RESTARTED)
     Route: 058
     Dates: start: 20211220, end: 20211223
  11. TECELEUKIN [Suspect]
     Active Substance: TECELEUKIN
     Indication: Neuroblastoma
     Dosage: UNK, CYCLICAL (CYCLE 1)
     Route: 041
     Dates: end: 2021
  12. TECELEUKIN [Suspect]
     Active Substance: TECELEUKIN
     Dosage: UNK, CYCLICAL (CYCLE 2)
     Route: 041
     Dates: start: 20211115, end: 20211125
  13. TECELEUKIN [Suspect]
     Active Substance: TECELEUKIN
     Dosage: UNK, CYCLICAL (IN CYCLE 4)
     Route: 041
     Dates: start: 20220111, end: 20220114
  14. TECELEUKIN [Suspect]
     Active Substance: TECELEUKIN
     Dosage: UNK, CYCLICAL (IN CYCLE 4)
     Route: 041
     Dates: start: 20220118, end: 20220121
  15. ACETAMINOPHEN [Concomitant]
     Active Substance: ACETAMINOPHEN
     Indication: Product used for unknown indication
     Dosage: UNK
     Route: 065
     Dates: start: 20220111, end: 20220114
  16. ACETAMINOPHEN [Concomitant]
     Active Substance: ACETAMINOPHEN
     Dosage: UNK
     Route: 065
     Dates: start: 20220118, end: 20220121
  17. HYDROXYZINE HYDROCHLORIDE [Concomitant]
     Active Substance: HYDROXYZINE HYDROCHLORIDE
     Indication: Product used for unknown indication
     Dosage: UNK
     Route: 065
     Dates: start: 20220111, end: 20220114
  18. HYDROXYZINE HYDROCHLORIDE [Concomitant]
     Active Substance: HYDROXYZINE HYDROCHLORIDE
     Dosage: UNK
     Route: 065
     Dates: start: 20220118, end: 20220121
  19. MORPHINE [Concomitant]
     Active Substance: MORPHINE
     Indication: Product used for unknown indication
     Dosage: UNK
     Route: 065
     Dates: start: 20220118, end: 20220120

REACTIONS (13)
  - Neuroblastoma recurrent [Unknown]
  - Pyrexia [Recovered/Resolved]
  - White blood cell count increased [Recovered/Resolved]
  - Pyrexia [Recovered/Resolved]
  - Pyrexia [Recovered/Resolved]
  - Eyelid oedema [Recovered/Resolved]
  - White blood cell count increased [Recovered/Resolved]
  - Pyrexia [Recovered/Resolved]
  - Vomiting [Recovered/Resolved]
  - Pyrexia [Recovered/Resolved]
  - Pain in extremity [Recovered/Resolved]
  - Peripheral swelling [Recovered/Resolved]
  - Weight increased [Recovered/Resolved]

NARRATIVE: CASE EVENT DATE: 20211026
